FAERS Safety Report 7667293-9 (Version None)
Quarter: 2011Q3

REPORT INFORMATION
  Report Type: 
  Country: None (occurrence: None)
  Receive Date: 20110806
  Receipt Date: 20110405
  Transmission Date: 20111222
  Serious: No
  Sender: FDA-Public Use
  Company Number: US-ABBOTT-11P-163-0717276-00

PATIENT
  Sex: Female
  Weight: 59.02 kg

DRUGS (4)
  1. BENADRYL [Concomitant]
     Indication: PRODUCT USED FOR UNKNOWN INDICATION
     Dates: start: 20110301
  2. CLARITIN [Concomitant]
     Indication: HYPERSENSITIVITY
     Dates: start: 20110301
  3. NIASPAN [Suspect]
     Indication: APOLIPOPROTEIN A-I INCREASED
     Dates: start: 20110402
  4. ALLEGRA [Concomitant]
     Indication: HYPERSENSITIVITY
     Dates: start: 20110301

REACTIONS (2)
  - DIZZINESS [None]
  - MALAISE [None]
